FAERS Safety Report 23202029 (Version 2)
Quarter: 2023Q4

REPORT INFORMATION
  Report Type: Report from Study
  Country: CO (occurrence: CO)
  Receive Date: 20231120
  Receipt Date: 20231218
  Transmission Date: 20240109
  Serious: Yes (Hospitalization)
  Sender: FDA-Public Use
  Company Number: CO-ABBVIE-5499975

PATIENT
  Age: 67 Year
  Sex: Female
  Weight: 41 kg

DRUGS (1)
  1. VENCLEXTA [Suspect]
     Active Substance: VENETOCLAX
     Indication: Chronic lymphocytic leukaemia
     Dosage: FORM STRENGTH: 100 MG
     Route: 048
     Dates: start: 20221121, end: 20230618

REACTIONS (6)
  - Immunodeficiency [Recovering/Resolving]
  - Pyrexia [Recovering/Resolving]
  - Discouragement [Recovering/Resolving]
  - Immunodeficiency [Recovering/Resolving]
  - Body height decreased [Recovering/Resolving]
  - Infection [Recovering/Resolving]

NARRATIVE: CASE EVENT DATE: 20231023
